FAERS Safety Report 8170858-1 (Version None)
Quarter: 2012Q1

REPORT INFORMATION
  Report Type: 
  Country: None (occurrence: None)
  Receive Date: 20120104
  Receipt Date: 20111018
  Transmission Date: 20120608
  Serious: No
  Sender: FDA-Public Use
  Company Number: 2011HGS-002650

PATIENT
  Age: 61 Year
  Sex: Female
  Weight: 49.4421 kg

DRUGS (24)
  1. PROGESTERONE GEL (PROGESTERONE) (PROGESTERONE) [Concomitant]
  2. MELOXICAM [Concomitant]
  3. SINGULAIR (MONTELUKAST SODIUM) (MONTELUKAST SODIUM) [Concomitant]
  4. NALTREXONE (NALTREXONE) (NALTREXONE) [Concomitant]
  5. DICYCLOMINE (DICYCLOVERINE) (DICYCLOVERINE) [Concomitant]
  6. VITAMIN E (TOCOPHEROL) (TOCOPHEROL) [Concomitant]
  7. TEMAZEPAM [Concomitant]
  8. MECLIZINE (MECLOZINE HYDROCHLORIDE) (MECLOZINE HYDROCHLORIDE) [Concomitant]
  9. ESTRADIOL 6% (ESTRADIOL) (ESTRADIOL) [Concomitant]
  10. STRONTIUM (STRONTIUM CHLORIDE) (STRONTIUM CHLORIDE) [Concomitant]
  11. ELMIRON (PENTOSAN POLYSULFATE SODIUM) (PENTOSAN POLYSULFATE SODIUM) [Concomitant]
  12. ZINC (ZINC) (ZINC) [Concomitant]
  13. VITAMIN D (ERGOCALCIFEROL) (ERGOCALCIFEROL) [Concomitant]
  14. BACLOFEN [Concomitant]
  15. OMEPRAZOLE [Concomitant]
  16. BENLYSTA [Suspect]
     Indication: SYSTEMIC LUPUS ERYTHEMATOSUS
     Dosage: 10 MG/KG, INTRAVENOUS DRIP
     Route: 041
     Dates: start: 20110929
  17. TOPAMAX (TOPIRAMATE) (TOPIRAMATE) [Concomitant]
  18. TRAZODONE (TRAZODONE) (TRAZODONE) [Concomitant]
  19. TESTOSTERONE GEL (TESTOSTERONE) (TESTOSTERONE) [Concomitant]
  20. DHEA (PRASTERONE) (PRASTERONE) [Concomitant]
  21. ARMOUR THYROID (THYROID) (THYROID) [Concomitant]
  22. PLAQUENIL (HYDROXYCHLOROQUINE SULFATE) (HYDROXYCHLOROQUINE SULFATE) [Concomitant]
  23. VITAMIN A (RETINOL) (RETINOL) [Concomitant]
  24. ESTRACE VAGINAL (ESTRADIOL) (ESTRADIOL) [Concomitant]

REACTIONS (4)
  - MYALGIA [None]
  - FATIGUE [None]
  - ARTHRALGIA [None]
  - CONSTIPATION [None]
